FAERS Safety Report 7445602-3 (Version None)
Quarter: 2011Q2

REPORT INFORMATION
  Report Type: 
  Country: None (occurrence: None)
  Receive Date: 20110429
  Receipt Date: 20110419
  Transmission Date: 20111010
  Serious: Yes (Death)
  Sender: FDA-Public Use
  Company Number: JP-SANOFI-AVENTIS-2011SA024972

PATIENT
  Age: 60 Year
  Sex: Male

DRUGS (5)
  1. ELPLAT [Suspect]
     Indication: COLON CANCER
     Route: 041
     Dates: start: 20110222, end: 20110222
  2. FLUOROURACIL [Concomitant]
     Route: 041
     Dates: start: 20110222, end: 20110223
  3. CALCIUM LEVOFOLINATE [Concomitant]
     Indication: COLON CANCER
     Route: 041
     Dates: start: 20110222, end: 20110223
  4. FLUOROURACIL [Concomitant]
     Indication: COLON CANCER
     Route: 040
     Dates: start: 20110222, end: 20110222
  5. BEVACIZUMAB [Concomitant]
     Indication: COLON CANCER
     Route: 041
     Dates: start: 20110222, end: 20110222

REACTIONS (1)
  - NEUTROPHIL COUNT DECREASED [None]
